FAERS Safety Report 5990601-1 (Version None)
Quarter: 2008Q4

REPORT INFORMATION
  Report Type: 
  Country: None (occurrence: None)
  Receive Date: 20081202
  Receipt Date: 20071119
  Transmission Date: 20090506
  Serious: Yes (Other)
  Sender: FDA-Public Use
  Company Number: WAES 0711USA03946

PATIENT
  Age: 83 Year
  Sex: Female
  Weight: 40.8237 kg

DRUGS (1)
  1. FOSAMAX [Suspect]
     Indication: OSTEOPOROSIS
     Dosage: 70 MG/WKY/PO
     Route: 048

REACTIONS (2)
  - DRUG ADMINISTRATION ERROR [None]
  - GASTRITIS [None]
